FAERS Safety Report 5085300-7 (Version None)
Quarter: 2006Q3

REPORT INFORMATION
  Report Type: 
  Country: None (occurrence: None)
  Receive Date: 20060817
  Receipt Date: 20060804
  Transmission Date: 20061208
  Serious: Yes (Death, Hospitalization)
  Sender: FDA-Public Use
  Company Number: 2006057907

PATIENT
  Age: 53 Year
  Sex: Male
  Weight: 138.3471 kg

DRUGS (1)
  1. BEXTRA [Suspect]
     Indication: PAIN
     Dosage: 20 MG (20 MG, 1 IN 1 D)
     Dates: start: 20030301

REACTIONS (3)
  - ARTERIOSCLEROSIS [None]
  - CARDIAC ARREST [None]
  - CEREBROVASCULAR ACCIDENT [None]
